FAERS Safety Report 5714381-X (Version None)
Quarter: 2008Q2

REPORT INFORMATION
  Report Type: 
  Country: None (occurrence: None)
  Receive Date: 20080423
  Receipt Date: 20080417
  Transmission Date: 20081010
  Serious: Yes (Death)
  Sender: FDA-Public Use
  Company Number: PHHY2008BR05772

PATIENT

DRUGS (1)
  1. GALVUS MET [Suspect]

REACTIONS (1)
  - CARDIAC ARREST [None]
